FAERS Safety Report 9716167 (Version 1)
Quarter: 2013Q4

REPORT INFORMATION
  Report Type: Spontaneous
  Country: US (occurrence: None)
  Receive Date: 20131126
  Receipt Date: 20131126
  Transmission Date: 20140711
  Serious: Yes (Death)
  Sender: FDA-Public Use
  Company Number: None

PATIENT
  Age: 89 Year
  Sex: Female
  Weight: 70.2 kg

DRUGS (6)
  1. WARFARIN [Suspect]
     Indication: ATRIAL FIBRILLATION
     Route: 048
  2. NORCO [Concomitant]
  3. LONOX [Concomitant]
  4. FUROSEMIDE [Concomitant]
  5. OXYCODONE [Concomitant]
  6. WARFARIN [Concomitant]

REACTIONS (6)
  - Chest pain [None]
  - Periorbital haematoma [None]
  - Memory impairment [None]
  - Pain [None]
  - Fall [None]
  - Wound [None]
